FAERS Safety Report 18203466 (Version 1)
Quarter: 2020Q3

REPORT INFORMATION
  Report Type: Spontaneous
  Country: US (occurrence: US)
  Receive Date: 20200827
  Receipt Date: 20200827
  Transmission Date: 20201103
  Serious: Yes (Other)
  Sender: FDA-Public Use
  Company Number: NVSC2020US231901

PATIENT
  Sex: Male

DRUGS (3)
  1. IMATINIB. [Suspect]
     Active Substance: IMATINIB MESYLATE
     Indication: CHRONIC MYELOID LEUKAEMIA
     Dosage: UNK
     Route: 065
     Dates: start: 20190220, end: 20200620
  2. DASATINIB. [Suspect]
     Active Substance: DASATINIB
     Indication: CHRONIC MYELOID LEUKAEMIA
     Dosage: UNK
     Route: 065
     Dates: start: 20181120, end: 20190220
  3. OMACETAXINE [Suspect]
     Active Substance: OMACETAXINE
     Indication: PRODUCT USED FOR UNKNOWN INDICATION
     Route: 065

REACTIONS (10)
  - Therapy partial responder [Unknown]
  - Acute kidney injury [Unknown]
  - Drug resistance [Unknown]
  - Acute myocardial infarction [Unknown]
  - Drug intolerance [Unknown]
  - Atrial fibrillation [Unknown]
  - Respiratory failure [Unknown]
  - Gastrointestinal haemorrhage [Unknown]
  - Cardiac failure congestive [Unknown]
  - Hyperglycaemia [Unknown]
